FAERS Safety Report 5006154-0 (Version None)
Quarter: 2006Q1

REPORT INFORMATION
  Report Type: 
  Country: None (occurrence: None)
  Receive Date: 20060328
  Receipt Date: 20051103
  Transmission Date: 20060701
  Serious: Yes (Hospitalization)
  Sender: FDA-Public Use
  Company Number: K200501436

PATIENT
  Age: 57 Year
  Sex: Male

DRUGS (2)
  1. RAMIPRIL [Suspect]
     Indication: HYPERTENSION
     Dosage: 20 MG, QD, ORAL
     Route: 048
     Dates: start: 20050820, end: 20050915
  2. MICARDIS [Suspect]

REACTIONS (1)
  - BLOOD CREATININE INCREASED [None]
